FAERS Safety Report 8124198-7 (Version None)
Quarter: 2012Q1

REPORT INFORMATION
  Report Type: 
  Country: None (occurrence: None)
  Receive Date: 20120209
  Receipt Date: 20120201
  Transmission Date: 20120608
  Serious: Yes (Hospitalization)
  Sender: FDA-Public Use
  Company Number: US-US-EMD SERONO, INC.-7110703

PATIENT
  Sex: Female
  Weight: 44 kg

DRUGS (2)
  1. XANAX [Concomitant]
     Indication: TREMOR
  2. REBIF [Suspect]
     Indication: MULTIPLE SCLEROSIS
     Route: 058
     Dates: start: 20090801, end: 20111101

REACTIONS (2)
  - MULTIPLE SCLEROSIS RELAPSE [None]
  - SUICIDE ATTEMPT [None]
